FAERS Safety Report 13272237 (Version 1)
Quarter: 2017Q1

REPORT INFORMATION
  Report Type: Spontaneous
  Country: US (occurrence: US)
  Receive Date: 20170224
  Receipt Date: 20170224
  Transmission Date: 20170428
  Serious: Yes (Life-Threatening, Hospitalization, Disabling, Other)
  Sender: FDA-Public Use
  Company Number: None

PATIENT
  Age: 23 Year
  Sex: Female
  Weight: 49.5 kg

DRUGS (3)
  1. ABILIFY [Suspect]
     Active Substance: ARIPIPRAZOLE
     Indication: PSYCHOTIC DISORDER
  2. CIPROFLOXACIN. [Suspect]
     Active Substance: CIPROFLOXACIN
     Indication: PSYCHOTIC DISORDER
  3. RISPERDONE [Suspect]
     Active Substance: RISPERIDONE
     Indication: PSYCHOTIC DISORDER

REACTIONS (12)
  - Chest pain [None]
  - Nausea [None]
  - Tachycardia [None]
  - Migraine [None]
  - Muscle rupture [None]
  - Neuralgia [None]
  - Eye movement disorder [None]
  - Muscle injury [None]
  - Feeling hot [None]
  - Flushing [None]
  - Nerve compression [None]
  - Nerve injury [None]

NARRATIVE: CASE EVENT DATE: 20170101
